FAERS Safety Report 8933055 (Version 1)
Quarter: 2012Q4

REPORT INFORMATION
  Report Type: 
  Country: CR (occurrence: CR)
  Receive Date: 20121128
  Receipt Date: 20121128
  Transmission Date: 20130627
  Serious: Yes (Other)
  Sender: FDA-Public Use
  Company Number: CR-BAYER-2012-123417

PATIENT
  Age: 78 Year
  Sex: Female

DRUGS (1)
  1. CARDIOASPIRINA [Suspect]
     Indication: CEREBROVASCULAR ACCIDENT PROPHYLAXIS
     Route: 048

REACTIONS (2)
  - Atrial fibrillation [None]
  - Gastric disorder [None]
